FAERS Safety Report 6044012-3 (Version None)
Quarter: 2009Q1

REPORT INFORMATION
  Report Type: 
  Country: None (occurrence: None)
  Receive Date: 20090116
  Receipt Date: 20090116
  Transmission Date: 20090719
  Serious: No
  Sender: FDA-Public Use
  Company Number: None

PATIENT
  Age: 70 Year
  Sex: Female
  Weight: 60 kg

DRUGS (1)
  1. ALTEPLASE 100 MG VIAL GENENTECH12 [Suspect]
     Indication: ISCHAEMIC STROKE
     Dosage: 54.5 MG ONETIME IV DRIP
     Route: 041
     Dates: start: 20081212, end: 20081212

REACTIONS (3)
  - BLOOD PRESSURE DIASTOLIC DECREASED [None]
  - CEREBRAL HAEMORRHAGE [None]
  - CEREBROVASCULAR ACCIDENT [None]
